FAERS Safety Report 12536858 (Version 1)
Quarter: 2016Q3

REPORT INFORMATION
  Report Type: Spontaneous
  Country: FR (occurrence: FR)
  Receive Date: 20160707
  Receipt Date: 20160707
  Transmission Date: 20161109
  Serious: Yes (Other)
  Sender: FDA-Public Use
  Company Number: FR-IPCA LABORATORIES LIMITED-IPC201606-000552

PATIENT
  Age: 76 Year
  Sex: Male

DRUGS (2)
  1. METFORMIN HYDROCHLORIDE. [Suspect]
     Active Substance: METFORMIN HYDROCHLORIDE
  2. SITAGLIPTIN [Suspect]
     Active Substance: SITAGLIPTIN

REACTIONS (1)
  - Pemphigoid [Recovering/Resolving]
